FAERS Safety Report 7901541-2 (Version None)
Quarter: 2011Q4

REPORT INFORMATION
  Report Type: 
  Country: None (occurrence: None)
  Receive Date: 20111108
  Receipt Date: 20111102
  Transmission Date: 20120403
  Serious: Yes (Other)
  Sender: FDA-Public Use
  Company Number: JP-BAYER-2011-107184

PATIENT
  Age: 65 Year
  Sex: Female

DRUGS (3)
  1. PREGABALIN [Concomitant]
     Indication: HERPES ZOSTER
     Dosage: UNK
     Route: 048
  2. ASPIRIN [Suspect]
     Indication: THROMBOCYTOSIS
     Dosage: UNK
     Route: 048
  3. VALACYCLOVIR HYDROCHLORIDE [Concomitant]
     Indication: HERPES ZOSTER
     Dosage: UNK
     Route: 048

REACTIONS (1)
  - INJECTION SITE HAEMATOMA [None]
